FAERS Safety Report 25831234 (Version 4)
Quarter: 2025Q4

REPORT INFORMATION
  Report Type: Spontaneous
  Country: AU (occurrence: AU)
  Receive Date: 20250922
  Receipt Date: 20251216
  Transmission Date: 20260118
  Serious: Yes (Death, Hospitalization, Disabling, Other)
  Sender: PFIZER
  Company Number: AU-PFIZER INC-202500170757

PATIENT
  Age: 67 Year
  Sex: Female
  Weight: 90 kg

DRUGS (10)
  1. ELREXFIO [Suspect]
     Active Substance: ELRANATAMAB-BCMM
     Indication: Plasma cell myeloma
     Dosage: 5 DOSES, 1X12 MG, 1X32MG, 3X76MG
     Route: 058
     Dates: start: 20250702, end: 20250816
  2. PANTOPRAZOLE SODIUM [Concomitant]
     Active Substance: PANTOPRAZOLE SODIUM
     Indication: Therapeutic procedure
     Dosage: 1 DF, 1X/DAY (1 TABLET IN THE MORNING SWALLOWED WHOLE)
  3. ALLOPURINOL [Concomitant]
     Active Substance: ALLOPURINOL
     Indication: Prophylaxis
     Dosage: 1 DF, 1X/DAY (1 TABLET IN THE MORNING WITH FOOD)
  4. BICOR (BISOPROLOL FUMARATE) [Concomitant]
     Indication: Therapeutic procedure
     Dosage: 0.5 DF, 1X/DAY (HALF A TABLET IN THE MORNING)
  5. VALACICLOVIR RBX [Concomitant]
     Indication: Prophylaxis
     Dosage: 1 DF, 1X/DAY (1 TABLET IN THE MORNING)
  6. JADENU [Concomitant]
     Active Substance: DEFERASIROX
     Indication: Blood iron increased
     Dosage: 3 DF, 1X/DAY (3 TABLETS IN THE MORNING)
  7. MAG SUP [Concomitant]
     Indication: Mineral supplementation
     Dosage: 2 DF, 2X/DAY
  8. BACTRIM DS [Concomitant]
     Active Substance: SULFAMETHOXAZOLE\TRIMETHOPRIM
     Indication: Prophylaxis
     Dosage: 1 DF, 2X/DAY (ON MONDAYS AND THURSDAYS)
  9. FILGRASTIM [Concomitant]
     Active Substance: FILGRASTIM
     Indication: Therapeutic procedure
     Dosage: 300 UG, 2X/WEEK (ON MONDAY AND THURSDAYS)
  10. EMEXLON [Concomitant]
     Indication: Prophylaxis of nausea and vomiting
     Dosage: 1 DF, 3X/DAY WHEN REQUIRED

REACTIONS (13)
  - Hepatic failure [Fatal]
  - Blood bilirubin increased [Fatal]
  - Muscle fatigue [Fatal]
  - Liver disorder [Fatal]
  - Thrombosis [Fatal]
  - Yellow skin [Fatal]
  - Plasma cell myeloma [Unknown]
  - Malignant neoplasm progression [Unknown]
  - Renal disorder [Unknown]
  - Fluid retention [Not Recovered/Not Resolved]
  - Malaise [Not Recovered/Not Resolved]
  - Swelling [Not Recovered/Not Resolved]
  - Medication error [Unknown]

NARRATIVE: CASE EVENT DATE: 20250101
